FAERS Safety Report 6899436-9 (Version None)
Quarter: 2010Q3

REPORT INFORMATION
  Report Type: 
  Country: None (occurrence: None)
  Receive Date: 20100803
  Receipt Date: 20090803
  Transmission Date: 20110219
  Serious: No
  Sender: FDA-Public Use
  Company Number: US-PFIZER INC-2005163348

PATIENT
  Sex: Female
  Weight: 65.76 kg

DRUGS (7)
  1. LYRICA [Suspect]
     Indication: NEUROPATHY PERIPHERAL
     Dosage: 50 MG, 3X/DAY
     Route: 048
     Dates: start: 20051101
  2. NORTRIPTYLINE [Suspect]
     Indication: NEUROPATHY PERIPHERAL
     Dosage: 10 MG, UNK
     Dates: start: 20051125
  3. VICODIN [Suspect]
     Dosage: UNK
  4. PREMARIN [Concomitant]
     Dosage: UNK
  5. MAXZIDE [Concomitant]
     Dosage: UNK
  6. ACETYLSALICYLIC ACID SRT [Concomitant]
     Dosage: UNK
  7. ULTRAM [Concomitant]
     Dosage: UNK
     Dates: end: 20051101

REACTIONS (3)
  - DRUG INEFFECTIVE [None]
  - MIDDLE INSOMNIA [None]
  - PAIN [None]
